FAERS Safety Report 25874184 (Version 2)
Quarter: 2025Q4

REPORT INFORMATION
  Report Type: Spontaneous
  Country: US (occurrence: US)
  Receive Date: 20251002
  Receipt Date: 20251006
  Transmission Date: 20260118
  Serious: No
  Sender: ROCHE
  Company Number: US-ROCHE-10000394676

PATIENT
  Age: 14 Year
  Sex: Male
  Weight: 108.86 kg

DRUGS (6)
  1. XOLAIR [Suspect]
     Active Substance: OMALIZUMAB
     Indication: Asthma
     Dosage: USED A 15 0MG AND A  75 MG PREFILLED SYRINGE TO DELIVER A 225MG DOSE
     Route: 058
     Dates: start: 2021, end: 202409
  2. XOLAIR [Suspect]
     Active Substance: OMALIZUMAB
     Indication: Food allergy
  3. XOLAIR [Suspect]
     Active Substance: OMALIZUMAB
     Indication: Asthma
     Dosage: USES A 150 MG AND A 75 MG AUTOINJECTOR TO DELIVER A 225MG DOSE
     Route: 058
  4. XOLAIR [Suspect]
     Active Substance: OMALIZUMAB
     Indication: Food allergy
     Dosage: STRENGTH: 150MG/ML
     Route: 058
     Dates: start: 202112
  5. XOLAIR [Suspect]
     Active Substance: OMALIZUMAB
     Dosage: STRENGTH:75MG/0.5ML
     Route: 058
     Dates: start: 202112
  6. BENADRYL [Concomitant]
     Active Substance: DIPHENHYDRAMINE HYDROCHLORIDE
     Indication: Food allergy

REACTIONS (4)
  - Underdose [Unknown]
  - Wrong technique in product usage process [Unknown]
  - Device issue [Unknown]
  - No adverse event [Unknown]

NARRATIVE: CASE EVENT DATE: 20240901
